FAERS Safety Report 25705392 (Version 1)
Quarter: 2025Q3

REPORT INFORMATION
  Report Type: Spontaneous
  Country: US (occurrence: None)
  Receive Date: 20250819
  Receipt Date: 20250819
  Transmission Date: 20251020
  Serious: Yes (unspecified)
  Sender: FDA-CTU
  Company Number: None

PATIENT
  Age: 71 Year
  Sex: Male
  Weight: 62 kg

DRUGS (1)
  1. CEFTRIAXONE [Suspect]
     Active Substance: CEFTRIAXONE
     Indication: Diabetic foot infection
     Route: 040

REACTIONS (9)
  - Infusion related reaction [None]
  - Blood pressure systolic decreased [None]
  - Cold sweat [None]
  - Vision blurred [None]
  - Xanthopsia [None]
  - Purulence [None]
  - Osteomyelitis [None]
  - Presyncope [None]
  - Nausea [None]

NARRATIVE: CASE EVENT DATE: 20250816
